FAERS Safety Report 17342330 (Version 2)
Quarter: 2021Q1

REPORT INFORMATION
  Report Type: Spontaneous
  Country: US (occurrence: US)
  Receive Date: 20200129
  Receipt Date: 20210203
  Transmission Date: 20210419
  Serious: No
  Sender: FDA-Public Use
  Company Number: US-ALLERGAN-1925436US

PATIENT
  Age: 54 Year
  Sex: Female

DRUGS (3)
  1. BOTOX COSMETIC [Suspect]
     Active Substance: ONABOTULINUMTOXINA
     Indication: SKIN WRINKLING
     Dosage: UNK, SINGLE
     Dates: start: 20181009, end: 20181009
  2. BOTOX COSMETIC [Suspect]
     Active Substance: ONABOTULINUMTOXINA
     Indication: SKIN WRINKLING
     Dosage: UNK, SINGLE
     Dates: start: 20181009, end: 20181009
  3. BOTOX COSMETIC [Suspect]
     Active Substance: ONABOTULINUMTOXINA
     Indication: SKIN WRINKLING
     Dosage: UNK, SINGLE
     Dates: start: 20181009, end: 20181009

REACTIONS (10)
  - Diplopia [Not Recovered/Not Resolved]
  - Impaired driving ability [Not Recovered/Not Resolved]
  - Off label use [Unknown]
  - Visual impairment [Not Recovered/Not Resolved]
  - Impaired work ability [Not Recovered/Not Resolved]
  - Feeling abnormal [Unknown]
  - Asthenopia [Not Recovered/Not Resolved]
  - Fatigue [Not Recovered/Not Resolved]
  - Dyspnoea [Unknown]
  - Facial paralysis [Recovered/Resolved]

NARRATIVE: CASE EVENT DATE: 201810
